FAERS Safety Report 6828912-X (Version None)
Quarter: 2010Q3

REPORT INFORMATION
  Report Type: 
  Country: None (occurrence: None)
  Receive Date: 20100709
  Receipt Date: 20070222
  Transmission Date: 20110219
  Serious: No
  Sender: FDA-Public Use
  Company Number: US-PFIZER INC-2007015836

PATIENT
  Sex: Male
  Weight: 73.94 kg

DRUGS (7)
  1. CHANTIX [Suspect]
     Indication: SMOKING CESSATION THERAPY
     Dates: start: 20070101
  2. DIGITEK [Concomitant]
     Indication: ARRHYTHMIA
  3. TOPROL-XL [Concomitant]
     Indication: BLOOD PRESSURE INCREASED
  4. BENICAR [Concomitant]
     Indication: BLOOD PRESSURE INCREASED
  5. LORTAB [Concomitant]
     Indication: BACK DISORDER
  6. XANAX [Concomitant]
     Indication: BLOOD PRESSURE
  7. ALBUTEROL [Concomitant]
     Route: 055

REACTIONS (6)
  - ABNORMAL DREAMS [None]
  - CONSTIPATION [None]
  - DYSPEPSIA [None]
  - FLATULENCE [None]
  - NAUSEA [None]
  - VOMITING [None]
